FAERS Safety Report 9267014 (Version 1)
Quarter: 2013Q2

REPORT INFORMATION
  Report Type: Spontaneous
  Country: US (occurrence: US)
  Receive Date: 20130502
  Receipt Date: 20130502
  Transmission Date: 20140414
  Serious: No
  Sender: FDA-Public Use
  Company Number: US-PFIZER INC-2013134565

PATIENT
  Age: 70 Year
  Sex: Female
  Weight: 96.6 kg

DRUGS (6)
  1. ZOLOFT [Suspect]
     Indication: DEPRESSION
     Dosage: 50 MG, 1X/DAY
     Route: 048
     Dates: start: 201303
  2. PLAQUENIL [Concomitant]
     Indication: SYSTEMIC LUPUS ERYTHEMATOSUS
     Dosage: UNK
  3. VERAPAMIL [Concomitant]
     Indication: HYPERTENSION
     Dosage: UNK
  4. ACCUPRIL [Concomitant]
     Indication: HYPERTENSION
     Dosage: UNK
  5. SYNTHROID [Concomitant]
     Indication: HYPOTHYROIDISM
     Dosage: UNK
  6. ATIVAN [Concomitant]
     Dosage: UNK

REACTIONS (2)
  - Weight increased [Recovering/Resolving]
  - Drug ineffective [Unknown]
